FAERS Safety Report 18010988 (Version 1)
Quarter: 2020Q3

REPORT INFORMATION
  Report Type: Report from Study
  Country: FR (occurrence: FR)
  Receive Date: 20200710
  Receipt Date: 20200710
  Transmission Date: 20201103
  Serious: Yes (Death, Hospitalization, Other)
  Sender: FDA-Public Use
  Company Number: PHHY2016FR080304

PATIENT
  Age: 46 Year
  Sex: Male
  Weight: 78 kg

DRUGS (8)
  1. INNOHEP [Concomitant]
     Active Substance: TINZAPARIN SODIUM
     Indication: PULMONARY EMBOLISM
     Dosage: UNK
     Route: 065
     Dates: start: 201501
  2. CLINUTREN HP ENERGY [Concomitant]
     Indication: MALNUTRITION
     Dosage: UNK
     Route: 065
     Dates: start: 201601, end: 201603
  3. EVEROLIMUS. [Suspect]
     Active Substance: EVEROLIMUS
     Indication: RENAL CANCER METASTATIC
     Dosage: 10 MG, 1 DF QD
     Route: 048
     Dates: start: 201512
  4. ZOPICLONE [Concomitant]
     Active Substance: ZOPICLONE
     Indication: INSOMNIA
     Dosage: UNK
     Route: 065
     Dates: start: 201603
  5. LYRICA [Concomitant]
     Active Substance: PREGABALIN
     Indication: NEURALGIA
     Dosage: UNK
     Route: 065
     Dates: start: 201512, end: 201601
  6. OXYNORM [Concomitant]
     Active Substance: OXYCODONE HYDROCHLORIDE
     Indication: PAIN
     Dosage: UNK
     Route: 065
     Dates: start: 201606
  7. LYSANXIA [Concomitant]
     Active Substance: PRAZEPAM
     Indication: ANXIETY
     Dosage: UNK
     Route: 065
     Dates: start: 201603
  8. OXYCONTIN [Concomitant]
     Active Substance: OXYCODONE HYDROCHLORIDE
     Indication: PAIN
     Dosage: UNK
     Route: 065
     Dates: start: 201606

REACTIONS (6)
  - Malignant neoplasm progression [Unknown]
  - Death [Fatal]
  - Renal impairment [Not Recovered/Not Resolved]
  - General physical condition abnormal [Unknown]
  - Renal cancer metastatic [Unknown]
  - Brain compression [Unknown]

NARRATIVE: CASE EVENT DATE: 201603
